FAERS Safety Report 16989960 (Version 1)
Quarter: 2019Q4

REPORT INFORMATION
  Report Type: Spontaneous
  Country: US (occurrence: US)
  Receive Date: 20190920
  Receipt Date: 20190920
  Transmission Date: 20200122
  Serious: No
  Sender: FDA-Public Use
  Company Number: None

PATIENT
  Age: 69 Year
  Sex: Male

DRUGS (1)
  1. BUMETANIDE. [Suspect]
     Active Substance: BUMETANIDE
     Indication: CARDIAC FAILURE CONGESTIVE
     Route: 048
     Dates: start: 20180109

REACTIONS (5)
  - Intentional dose omission [None]
  - Post-traumatic stress disorder [None]
  - Depression [None]
  - Cardiac failure [None]
  - Suicidal ideation [None]

NARRATIVE: CASE EVENT DATE: 20190810
